FAERS Safety Report 5417222-3 (Version None)
Quarter: 2007Q3

REPORT INFORMATION
  Report Type: 
  Country: None (occurrence: None)
  Receive Date: 20070816
  Receipt Date: 20070806
  Transmission Date: 20080115
  Serious: Yes (Other)
  Sender: FDA-Public Use
  Company Number: GB-SANOFI-SYNTHELABO-A01200708686

PATIENT
  Age: 78 Year
  Sex: Female
  Weight: 73 kg

DRUGS (3)
  1. HYPROMELLOSE [Concomitant]
     Indication: DRUG USE FOR UNKNOWN INDICATION
     Dosage: UNK
     Route: 061
     Dates: start: 20070427
  2. PLAVIX [Suspect]
     Indication: HYPERTENSION
     Route: 048
     Dates: start: 20070315, end: 20070704
  3. PLAVIX [Suspect]
     Indication: ANGIOPATHY
     Route: 048
     Dates: start: 20070315, end: 20070704

REACTIONS (1)
  - EXTRASYSTOLES [None]
